FAERS Safety Report 8210475-8 (Version None)
Quarter: 2012Q1

REPORT INFORMATION
  Report Type: 
  Country: None (occurrence: None)
  Receive Date: 20120314
  Receipt Date: 20110314
  Transmission Date: 20120608
  Serious: No
  Sender: FDA-Public Use
  Company Number: US-ASTRAZENECA-2011SE14397

PATIENT

DRUGS (1)
  1. METOPROLOL SUCCINATE [Suspect]
     Route: 048

REACTIONS (4)
  - HEART RATE INCREASED [None]
  - POOR QUALITY SLEEP [None]
  - DRUG HYPERSENSITIVITY [None]
  - MALAISE [None]
